FAERS Safety Report 10419726 (Version 2)
Quarter: 2014Q3

REPORT INFORMATION
  Report Type: Spontaneous
  Country: US (occurrence: US)
  Receive Date: 20140829
  Receipt Date: 20140829
  Transmission Date: 20150326
  Serious: Yes (Hospitalization, Other)
  Sender: FDA-Public Use
  Company Number: US-009507513-2011SP025614

PATIENT
  Sex: Female
  Weight: 61.24 kg

DRUGS (1)
  1. NUVARING [Suspect]
     Active Substance: ETHINYL ESTRADIOL\ETONOGESTREL
     Indication: MENSTRUATION IRREGULAR
     Dates: start: 20090518, end: 200906

REACTIONS (8)
  - Pulmonary embolism [Recovered/Resolved]
  - Off label use [Unknown]
  - Anxiety [Unknown]
  - Deep vein thrombosis [Recovered/Resolved]
  - Small intestinal obstruction [Recovered/Resolved]
  - Thrombosis [Unknown]
  - Hyperchlorhydria [Unknown]
  - Leukopenia [Unknown]

NARRATIVE: CASE EVENT DATE: 20090530
